FAERS Safety Report 9973884 (Version 3)
Quarter: 2014Q2

REPORT INFORMATION
  Report Type: Spontaneous
  Country: US (occurrence: US)
  Receive Date: 20140306
  Receipt Date: 20140530
  Transmission Date: 20141212
  Serious: Yes (Death, Other)
  Sender: FDA-Public Use
  Company Number: US-CELGENEUS-163-21880-13102962

PATIENT
  Age: 68 Year
  Sex: Male
  Weight: 116.22 kg

DRUGS (12)
  1. REVLIMID [Suspect]
     Indication: PLASMA CELL MYELOMA
     Dosage: 25 MILLIGRAM
     Route: 048
     Dates: start: 201305, end: 201309
  2. VELCADE [Concomitant]
     Indication: PLASMA CELL MYELOMA
     Route: 065
     Dates: start: 20131127, end: 20131127
  3. VELCADE [Concomitant]
     Route: 065
     Dates: start: 20131204, end: 20131204
  4. VELCADE [Concomitant]
     Route: 065
     Dates: start: 20131211, end: 20131211
  5. CYTOXAN [Concomitant]
     Indication: PLASMA CELL MYELOMA
     Route: 048
     Dates: start: 20131127, end: 20131127
  6. CYTOXAN [Concomitant]
     Route: 048
     Dates: start: 20131202, end: 20131202
  7. CYTOXAN [Concomitant]
     Route: 048
     Dates: start: 20131204, end: 20131204
  8. CYTOXAN [Concomitant]
     Route: 048
     Dates: start: 20131211, end: 20131211
  9. DEXAMETHASONE [Concomitant]
     Indication: PLASMA CELL MYELOMA
     Route: 065
     Dates: start: 20131127, end: 20131127
  10. DEXAMETHASONE [Concomitant]
     Route: 065
     Dates: start: 20131202, end: 20131202
  11. DEXAMETHASONE [Concomitant]
     Route: 065
     Dates: start: 20131204, end: 20131204
  12. DEXAMETHASONE [Concomitant]
     Route: 065
     Dates: start: 20131211, end: 20131211

REACTIONS (3)
  - Cardiac amyloidosis [Fatal]
  - Plasma cell myeloma [Fatal]
  - Haemoglobin decreased [Unknown]
